FAERS Safety Report 5792001-6 (Version None)
Quarter: 2008Q2

REPORT INFORMATION
  Report Type: 
  Country: None (occurrence: None)
  Receive Date: 20080625
  Receipt Date: 20080320
  Transmission Date: 20081010
  Serious: No
  Sender: FDA-Public Use
  Company Number: US-WYE-H03230908

PATIENT
  Age: 81 Year
  Sex: Male

DRUGS (6)
  1. TORISEL [Suspect]
     Indication: RENAL CELL CARCINOMA
     Dosage: 25 MG 1X PER 1 WK, INTRAVENOUS
     Route: 042
     Dates: start: 20080313
  2. AMITRIPTLINE HYDROCHLORIDE TAB [Concomitant]
  3. OMEPRAZOLE [Concomitant]
  4. XOPENEX [Concomitant]
  5. IMDUR [Concomitant]
  6. METOPROLOL TARTRATE [Concomitant]

REACTIONS (2)
  - CONDITION AGGRAVATED [None]
  - COUGH [None]
